FAERS Safety Report 26199357 (Version 1)
Quarter: 2025Q4

REPORT INFORMATION
  Report Type: Spontaneous
  Country: US (occurrence: US)
  Receive Date: 20251225
  Receipt Date: 20251225
  Transmission Date: 20260117
  Serious: No
  Sender: MERCK KGAA
  Company Number: US-Merck Healthcare KGaA-2025065439

PATIENT
  Sex: Male

DRUGS (1)
  1. MAVENCLAD [Suspect]
     Active Substance: CLADRIBINE
     Indication: Multiple sclerosis
     Dosage: FIRST YEAR FIRST MONTH THERAPY
     Dates: start: 20251022, end: 20251026

REACTIONS (8)
  - Dysphagia [Unknown]
  - Tremor [Unknown]
  - Balance disorder [Unknown]
  - Myalgia [Unknown]
  - Muscle contractions involuntary [Unknown]
  - Back pain [Unknown]
  - Face oedema [Unknown]
  - Nasopharyngitis [Unknown]
